FAERS Safety Report 4780689-8 (Version None)
Quarter: 2005Q3

REPORT INFORMATION
  Report Type: 
  Country: None (occurrence: None)
  Receive Date: 20050926
  Receipt Date: 20050912
  Transmission Date: 20060218
  Serious: Yes (Disabling, Other)
  Sender: FDA-Public Use
  Company Number: GBWYE963308SEP05

PATIENT
  Sex: Female

DRUGS (1)
  1. PREMARIN [Suspect]
     Indication: HORMONE REPLACEMENT THERAPY
     Dosage: 1.25MG TABLETS FOR ABOUT THREE WEEKS

REACTIONS (6)
  - DEPRESSION [None]
  - DIZZINESS [None]
  - DYSPNOEA [None]
  - MALAISE [None]
  - NAUSEA [None]
  - NIGHTMARE [None]
